FAERS Safety Report 22592234 (Version 1)
Quarter: 2023Q2

REPORT INFORMATION
  Report Type: Report from Study
  Country: CO (occurrence: CO)
  Receive Date: 20230613
  Receipt Date: 20230613
  Transmission Date: 20230722
  Serious: Yes (Hospitalization, Other)
  Sender: FDA-Public Use
  Company Number: CO-ABBVIE-5285307

PATIENT
  Age: 59 Year
  Sex: Female
  Weight: 76 kg

DRUGS (2)
  1. HUMIRA [Suspect]
     Active Substance: ADALIMUMAB
     Indication: Rheumatoid arthritis
     Dosage: FORM STRENGTH 40 MILLIGRAM
     Route: 058
     Dates: end: 20221222
  2. HUMIRA [Suspect]
     Active Substance: ADALIMUMAB

REACTIONS (8)
  - Blister [Not Recovered/Not Resolved]
  - Gait inability [Not Recovered/Not Resolved]
  - Skin mass [Not Recovered/Not Resolved]
  - Skin burning sensation [Not Recovered/Not Resolved]
  - Skin ulcer [Not Recovered/Not Resolved]
  - Foot deformity [Not Recovered/Not Resolved]
  - Finger deformity [Not Recovered/Not Resolved]
  - Catheter placement [Not Recovered/Not Resolved]

NARRATIVE: CASE EVENT DATE: 20230401
